FAERS Safety Report 8082014-6 (Version None)
Quarter: 2012Q1

REPORT INFORMATION
  Report Type: 
  Country: None (occurrence: None)
  Receive Date: 20120130
  Receipt Date: 20120110
  Transmission Date: 20120608
  Serious: Yes (Life-Threatening, Hospitalization)
  Sender: FDA-Public Use
  Company Number: PHHO2011BR021393

PATIENT
  Sex: Male

DRUGS (9)
  1. DIGOXIN [Suspect]
     Dosage: 0.125 MG, QD
  2. CARVEDILOL [Concomitant]
     Dosage: 25 MG, BID
  3. SIMVASTATIN [Concomitant]
     Dosage: 40 MG, QD
  4. SPIRONOLACTONE [Concomitant]
     Dosage: 25 MG, QD
  5. BLINDED NO TREATMENT RECEIVED [Suspect]
     Indication: CARDIAC FAILURE
     Dosage: CODE NOT BROKEN
     Route: 048
     Dates: start: 20100113, end: 20101219
  6. BLINDED ALISKIREN [Suspect]
     Indication: CARDIAC FAILURE
     Dosage: CODE NOT BROKEN
     Route: 048
     Dates: start: 20100113, end: 20101219
  7. AMIODARONE HCL [Concomitant]
     Dosage: 200 MG, QD
  8. FUROSEMIDE [Suspect]
     Dosage: 40 MG, QD
  9. ENALAPRIL MALEATE [Suspect]
     Indication: CARDIAC FAILURE
     Dosage: CODE NOT BROKEN
     Route: 048
     Dates: start: 20100113, end: 20101219

REACTIONS (2)
  - VENTRICULAR TACHYCARDIA [None]
  - RENAL FAILURE ACUTE [None]
